FAERS Safety Report 20130164 (Version 1)
Quarter: 2021Q4

REPORT INFORMATION
  Report Type: Spontaneous
  Country: US (occurrence: None)
  Receive Date: 20211129
  Receipt Date: 20211129
  Transmission Date: 20220304
  Serious: No
  Sender: FDA-Public Use
  Company Number: None

PATIENT
  Age: 59 Year
  Sex: Female

DRUGS (19)
  1. ARIPIPRAZOLE [Suspect]
     Active Substance: ARIPIPRAZOLE
     Indication: Psychotic disorder
     Dosage: FREQUENCY : DAILY;?
     Route: 048
     Dates: start: 20210504, end: 20210712
  2. SENNA/DOCUSATE SODIUM [Concomitant]
     Active Substance: DOCUSATE SODIUM\SENNOSIDES
     Dates: start: 20210430
  3. ROSUVASTATIN [Concomitant]
     Active Substance: ROSUVASTATIN
     Dates: start: 20210401
  4. HYPO TEARS [Concomitant]
     Dates: start: 20210428
  5. POLYETHYLENE GLYCOL 3350 [Concomitant]
     Active Substance: POLYETHYLENE GLYCOL 3350
     Dates: start: 20210502
  6. MONTELUKAST [Concomitant]
     Active Substance: MONTELUKAST SODIUM
     Dates: start: 20210511
  7. METFORMIN [Concomitant]
     Active Substance: METFORMIN HYDROCHLORIDE
     Dates: start: 20210401
  8. MELATONIN [Concomitant]
     Active Substance: MELATONIN
     Dates: start: 20210512
  9. AZELASTINE [Concomitant]
     Active Substance: AZELASTINE
     Dates: start: 20210428
  10. ATROPINE [Concomitant]
     Active Substance: ATROPINE
     Dates: start: 20210520
  11. LUBIPROSTONE [Concomitant]
     Active Substance: LUBIPROSTONE
     Dates: start: 20210512
  12. LACTULOSE [Concomitant]
     Active Substance: LACTULOSE
     Dates: start: 20210511
  13. HYDROCORTISONE [Concomitant]
     Active Substance: HYDROCORTISONE
     Dates: start: 20210526
  14. FLUTICASONE [Concomitant]
     Active Substance: FLUTICASONE
     Dates: start: 20210428
  15. HYDROCHLOROTHIAZIDE [Concomitant]
     Active Substance: HYDROCHLOROTHIAZIDE
     Dates: start: 20210408
  16. CLOZAPINE [Concomitant]
     Active Substance: CLOZAPINE
     Dates: start: 20210503
  17. CALCIUM POLYCARBOPHIL [Concomitant]
     Active Substance: CALCIUM POLYCARBOPHIL
     Dates: start: 20210428
  18. ARIPIPRAZOLE [Concomitant]
     Active Substance: ARIPIPRAZOLE
     Dates: start: 20210517, end: 20210712
  19. CLOZAPINE [Suspect]
     Active Substance: CLOZAPINE

REACTIONS (5)
  - Skin exfoliation [None]
  - Salivary hypersecretion [None]
  - Hypersensitivity [None]
  - Skin exfoliation [None]
  - Affective disorder [None]

NARRATIVE: CASE EVENT DATE: 20210527
